FAERS Safety Report 5283139-0 (Version None)
Quarter: 2007Q1

REPORT INFORMATION
  Report Type: 
  Country: None (occurrence: None)
  Receive Date: 20070329
  Receipt Date: 20070329
  Transmission Date: 20070707
  Serious: Yes (Other)
  Sender: FDA-Public Use
  Company Number: None

PATIENT
  Age: 63 Year
  Sex: Male
  Weight: 104.3273 kg

DRUGS (1)
  1. LISINOPRIL [Suspect]
     Dosage: 10 MG. DAILY
     Dates: start: 20070107, end: 20070312

REACTIONS (5)
  - COUGH [None]
  - MYALGIA [None]
  - PHARYNGOLARYNGEAL PAIN [None]
  - PULMONARY CONGESTION [None]
  - PYREXIA [None]
